FAERS Safety Report 10969196 (Version 1)
Quarter: 2015Q1

REPORT INFORMATION
  Report Type: Spontaneous
  Country: GB (occurrence: None)
  Receive Date: 20150327
  Receipt Date: 20150327
  Transmission Date: 20150721
  Serious: Yes (Hospitalization)
  Sender: FDA-Public Use
  Company Number: GB-DEXPHARM-20150188

PATIENT
  Age: 51 Year
  Sex: Male

DRUGS (3)
  1. TAZOCIN [Concomitant]
     Active Substance: PIPERACILLIN SODIUM\TAZOBACTAM SODIUM
  2. OMEPRAZOLE. [Suspect]
     Active Substance: OMEPRAZOLE
     Dosage: 40 MG MILLIGRAM(S), 1 IN 1 DAYS
     Route: 048
  3. RIFAMIXIN [Suspect]
     Active Substance: RIFAXIMIN
     Indication: HEPATIC ENCEPHALOPATHY
     Dosage: 400 MG MILLIGRAM(S) 3 IN 1 DAYS, ORAL
     Route: 048

REACTIONS (3)
  - Infectious colitis [None]
  - Rectal haemorrhage [None]
  - Clostridium test positive [None]
